FAERS Safety Report 24192211 (Version 1)
Quarter: 2024Q3

REPORT INFORMATION
  Report Type: Spontaneous
  Country: CN (occurrence: CN)
  Receive Date: 20240809
  Receipt Date: 20240809
  Transmission Date: 20241017
  Serious: Yes (Hospitalization, Other)
  Sender: JOHNSON AND JOHNSON
  Company Number: CN-BAYER-2024A113761

PATIENT
  Age: 85 Year
  Sex: Male

DRUGS (4)
  1. XARELTO [Suspect]
     Active Substance: RIVAROXABAN
     Indication: Product used for unknown indication
     Dosage: 15 MG, QD
     Route: 048
     Dates: start: 20240524, end: 20240530
  2. PREDNISONE ACETATE [Suspect]
     Active Substance: PREDNISONE ACETATE
     Indication: Antiinflammatory therapy
     Dosage: 30 MG, QD
     Route: 048
     Dates: start: 20240524, end: 20240530
  3. NINTEDANIB ESYLATE [Concomitant]
     Active Substance: NINTEDANIB ESYLATE
     Indication: Antiinflammatory therapy
     Dosage: 1 DF, BID
     Route: 048
     Dates: start: 20240520, end: 20240530
  4. RABEPRAZOLE SODIUM [Concomitant]
     Active Substance: RABEPRAZOLE SODIUM
     Indication: Antacid therapy
     Dosage: 10 MG, BID
     Route: 048
     Dates: start: 20240520, end: 20240530

REACTIONS (12)
  - Upper gastrointestinal haemorrhage [Recovering/Resolving]
  - Haematochezia [Unknown]
  - Pneumonia [Unknown]
  - Abdominal distension [Unknown]
  - Abdominal pain [Unknown]
  - Asthenia [Unknown]
  - Decreased appetite [Unknown]
  - Nausea [Unknown]
  - Productive cough [Unknown]
  - Tachypnoea [Unknown]
  - Chest discomfort [Unknown]
  - Respiratory rate increased [Unknown]

NARRATIVE: CASE EVENT DATE: 20240529
